FAERS Safety Report 18076405 (Version 1)
Quarter: 2020Q3

REPORT INFORMATION
  Report Type: Report from Study
  Country: US (occurrence: US)
  Receive Date: 20200728
  Receipt Date: 20200728
  Transmission Date: 20201103
  Serious: Yes (Hospitalization, Other)
  Sender: FDA-Public Use
  Company Number: US-BRISTOL-MYERS SQUIBB COMPANY-BMS-2016-057233

PATIENT
  Age: 49 Year
  Sex: Male
  Weight: 149.7 kg

DRUGS (3)
  1. IPILIMUMAB [Suspect]
     Active Substance: IPILIMUMAB
     Indication: MALIGNANT MELANOMA
     Dosage: 450 MILLIGRAM
     Route: 042
     Dates: start: 20160627
  2. NIVOLUMAB [Suspect]
     Active Substance: NIVOLUMAB
     Indication: MALIGNANT MELANOMA
     Dosage: 150 MILLIGRAM
     Route: 042
     Dates: start: 20160627
  3. GM?CSF [Suspect]
     Active Substance: GRANULOCYTE-MACROPHAGE COLONY-STIMULATING FACTOR
     Indication: MALIGNANT MELANOMA
     Dosage: 250 MICROGRAM, QD
     Route: 058
     Dates: start: 20160627, end: 20160705

REACTIONS (6)
  - Hyperglycaemia [Unknown]
  - Rash maculo-papular [Recovering/Resolving]
  - Abdominal pain [Not Recovered/Not Resolved]
  - Embolism [Recovered/Resolved]
  - Diarrhoea [Unknown]
  - Lymphocyte count decreased [Recovered/Resolved]

NARRATIVE: CASE EVENT DATE: 20160704
